FAERS Safety Report 7718249-9 (Version None)
Quarter: 2011Q3

REPORT INFORMATION
  Report Type: 
  Country: None (occurrence: None)
  Receive Date: 20110830
  Receipt Date: 20110826
  Transmission Date: 20111222
  Serious: Yes (Death)
  Sender: FDA-Public Use
  Company Number: TR-ROCHE-797258

PATIENT
  Sex: Male
  Weight: 50 kg

DRUGS (2)
  1. PEGINTERFERON ALFA-2A [Suspect]
     Route: 065
     Dates: start: 20100729, end: 20110405
  2. RIBAVIRIN [Suspect]
     Route: 065
     Dates: start: 20100729, end: 20110405

REACTIONS (1)
  - RESPIRATORY DISTRESS [None]
